FAERS Safety Report 7038753-9 (Version None)
Quarter: 2010Q4

REPORT INFORMATION
  Report Type: 
  Country: None (occurrence: None)
  Receive Date: 20101012
  Receipt Date: 20101004
  Transmission Date: 20110411
  Serious: Yes (Death)
  Sender: FDA-Public Use
  Company Number: NL-BIOGENIDEC-2010BI034409

PATIENT
  Age: 62 Year
  Sex: Female
  Weight: 150 kg

DRUGS (1)
  1. AVONEX [Suspect]
     Indication: MULTIPLE SCLEROSIS
     Route: 030
     Dates: start: 20050101, end: 20101001

REACTIONS (2)
  - DEATH [None]
  - LOWER LIMB FRACTURE [None]
